FAERS Safety Report 5853218-5 (Version None)
Quarter: 2008Q3

REPORT INFORMATION
  Report Type: 
  Country: None (occurrence: None)
  Receive Date: 20080821
  Receipt Date: 20080811
  Transmission Date: 20090109
  Serious: Yes (Hospitalization)
  Sender: FDA-Public Use
  Company Number: US-WYE-H02018508

PATIENT
  Sex: Male

DRUGS (4)
  1. EFFEXOR [Suspect]
     Dosage: DOSE AND FREQUENCY UNSPECIFIED
  2. SEROQUEL [Concomitant]
  3. PANTOPRAZOLE SODIUM [Concomitant]
  4. CYMBALTA [Concomitant]

REACTIONS (2)
  - GUN SHOT WOUND [None]
  - SUICIDE ATTEMPT [None]
